FAERS Safety Report 12505567 (Version 2)
Quarter: 2020Q3

REPORT INFORMATION
  Report Type: Report from Study
  Country: GB (occurrence: GB)
  Receive Date: 20160628
  Receipt Date: 20160929
  Transmission Date: 20201104
  Serious: Yes (Hospitalization, Other)
  Sender: FDA-Public Use
  Company Number: GB-JNJFOC-20160620000

PATIENT
  Age: 63 Year
  Sex: Male
  Weight: 70 kg

DRUGS (16)
  1. DARATUMUMAB [Suspect]
     Active Substance: DARATUMUMAB
     Indication: PLASMA CELL MYELOMA
     Dosage: ONCE.
     Route: 042
     Dates: start: 20160606, end: 20160606
  2. AMITRIPTYLINE [Concomitant]
     Active Substance: AMITRIPTYLINE
     Indication: BACK PAIN
     Route: 048
     Dates: start: 2013
  3. DARATUMUMAB [Suspect]
     Active Substance: DARATUMUMAB
     Route: 042
  4. ZOPICLONE [Concomitant]
     Active Substance: ZOPICLONE
     Indication: INSOMNIA
     Dosage: UP TO 4 TIMES A DAY
     Route: 048
     Dates: start: 2013
  5. MOVICOL [Concomitant]
     Active Substance: POLYETHYLENE GLYCOL 3350\POTASSIUM CHLORIDE\SODIUM BICARBONATE\SODIUM CHLORIDE
     Indication: CONSTIPATION PROPHYLAXIS
     Dosage: UP TO 4 SACHETS A DAY
     Route: 048
     Dates: start: 201605
  6. FENTANYL. [Concomitant]
     Active Substance: FENTANYL
     Indication: BACK PAIN
     Dosage: UP TO 3 TIMES A DAY
     Route: 061
     Dates: start: 20160519
  7. OXYCODONE [Concomitant]
     Active Substance: OXYCODONE
     Indication: BACK PAIN
     Route: 048
     Dates: start: 2013
  8. PARACETAMOL [Concomitant]
     Active Substance: ACETAMINOPHEN
     Indication: BACK PAIN
     Route: 048
     Dates: start: 2013
  9. QUININE [Concomitant]
     Active Substance: QUININE
     Indication: RESTLESS LEGS SYNDROME
     Dosage: UP TO 4 TIMES A DAY
     Route: 048
     Dates: start: 2013
  10. GABAPENTIN. [Concomitant]
     Active Substance: GABAPENTIN
     Indication: BACK PAIN
     Route: 048
     Dates: start: 2013
  11. LANSOPRAZOL [Concomitant]
     Active Substance: LANSOPRAZOLE
     Indication: PROPHYLAXIS
     Route: 048
     Dates: start: 2013
  12. FLUCONAZOLE. [Concomitant]
     Active Substance: FLUCONAZOLE
     Indication: ANTIFUNGAL PROPHYLAXIS
     Dosage: UP TO 4 TIMES A DAY
     Route: 048
     Dates: start: 2015
  13. CALCICHEW D3 [Concomitant]
     Active Substance: CALCIUM\CHOLECALCIFEROL
     Indication: PLASMA CELL MYELOMA
     Route: 048
     Dates: start: 2013
  14. CLODRONIC ACID [Concomitant]
     Active Substance: CLODRONIC ACID
     Indication: PROPHYLAXIS
     Dosage: UP TO 4 TIMES A DAY
     Route: 048
     Dates: start: 2013
  15. CHLORHEXIDINE [Concomitant]
     Active Substance: CHLORHEXIDINE
     Indication: INFECTION PROPHYLAXIS
     Dosage: UP TO 4 TIMES A DAY
     Route: 048
     Dates: start: 2013
  16. ACYCLOVIR. [Concomitant]
     Active Substance: ACYCLOVIR
     Indication: INFECTION PROPHYLAXIS
     Route: 048
     Dates: start: 2013

REACTIONS (2)
  - Hypertension [Recovered/Resolved]
  - Cellulitis [Recovered/Resolved]

NARRATIVE: CASE EVENT DATE: 20160606
